FAERS Safety Report 18399508 (Version 1)
Quarter: 2020Q4

REPORT INFORMATION
  Report Type: Spontaneous
  Country: US (occurrence: US)
  Receive Date: 20201019
  Receipt Date: 20201019
  Transmission Date: 20210114
  Serious: Yes (Other)
  Sender: FDA-Public Use
  Company Number: US-PFIZER INC-2020398002

PATIENT
  Age: 15 Year
  Sex: Female

DRUGS (4)
  1. DROPERIDOL. [Suspect]
     Active Substance: DROPERIDOL
     Dosage: 0.625 MG
     Route: 042
  2. PROCHLORPERAZINE. [Suspect]
     Active Substance: PROCHLORPERAZINE
     Dosage: 10 MG
     Route: 030
  3. CEPHALEXINE [Concomitant]
     Active Substance: CEPHALEXIN
     Indication: ANTIBIOTIC THERAPY
     Dosage: UNK
  4. IBUPROFEN. [Concomitant]
     Active Substance: IBUPROFEN
     Indication: PAIN
     Dosage: UNK

REACTIONS (1)
  - Pleurothotonus [Recovered/Resolved]
